FAERS Safety Report 23735851 (Version 3)
Quarter: 2025Q3

REPORT INFORMATION
  Report Type: Spontaneous
  Country: US (occurrence: US)
  Receive Date: 20240412
  Receipt Date: 20250908
  Transmission Date: 20251021
  Serious: No
  Sender: CHATTEM
  Company Number: US-OPELLA-2024OHG012287

PATIENT
  Age: 68 Year
  Sex: Male

DRUGS (1)
  1. NASACORT [Suspect]
     Active Substance: TRIAMCINOLONE ACETONIDE
     Indication: Hypersensitivity
     Dosage: SHOT 1 SPRAY INTO EACH NOSTRIL ONCE
     Route: 045
     Dates: start: 20240408

REACTIONS (1)
  - Eye contusion [Recovered/Resolved]

NARRATIVE: CASE EVENT DATE: 20240408
